FAERS Safety Report 19838640 (Version 1)
Quarter: 2021Q3

REPORT INFORMATION
  Report Type: Spontaneous
  Country: CN (occurrence: CN)
  Receive Date: 20210916
  Receipt Date: 20210916
  Transmission Date: 20211014
  Serious: Yes (Other)
  Sender: FDA-Public Use
  Company Number: NVSC2021CN206546

PATIENT
  Age: 51 Year
  Sex: Female

DRUGS (2)
  1. DABRAFENIB [Suspect]
     Active Substance: DABRAFENIB
     Indication: PRODUCT USED FOR UNKNOWN INDICATION
     Dosage: UNK
     Route: 048
     Dates: start: 20210406
  2. TRAMETINIB [Suspect]
     Active Substance: TRAMETINIB
     Indication: PRODUCT USED FOR UNKNOWN INDICATION
     Dosage: UNK
     Route: 048
     Dates: start: 20210406

REACTIONS (6)
  - Gastrooesophageal reflux disease [Unknown]
  - Rash [Recovered/Resolved]
  - Blood glucose abnormal [Unknown]
  - Gingival bleeding [Recovering/Resolving]
  - Hyperpyrexia [Recovering/Resolving]
  - Metastases to central nervous system [Unknown]
